FAERS Safety Report 7659364 (Version 3)
Quarter: 2012Q4

REPORT INFORMATION
  Report Type: 
  Country: US (occurrence: US)
  Receive Date: 20101108
  Receipt Date: 20120907
  Transmission Date: 20130627
  Serious: No
  Sender: FDA-Public Use
  Company Number: 2009BI035809

PATIENT
  Age: 56 None
  Sex: Male

DRUGS (3)
  1. TYSABRI [Suspect]
     Indication: MULTIPLE SCLEROSIS
     Route: 042
     Dates: start: 20050221, end: 20050221
  2. TYSABRI [Suspect]
     Indication: MULTIPLE SCLEROSIS
     Route: 042
     Dates: start: 20080324, end: 20091203
  3. DICLOFENAC [Concomitant]
     Indication: SPONDYLITIS

REACTIONS (4)
  - Hypersensitivity [Recovered/Resolved]
  - Chills [Recovered/Resolved]
  - Drug specific antibody present [Recovered/Resolved]
  - Rash [Recovered/Resolved]
